FAERS Safety Report 13986213 (Version 1)
Quarter: 2017Q3

REPORT INFORMATION
  Report Type: Spontaneous
  Country: US (occurrence: US)
  Receive Date: 20170919
  Receipt Date: 20170919
  Transmission Date: 20171128
  Serious: No
  Sender: FDA-Public Use
  Company Number: US-ASTRAZENECA-2017SE91925

PATIENT
  Sex: Female
  Weight: 61.2 kg

DRUGS (4)
  1. COREG [Concomitant]
     Active Substance: CARVEDILOL
     Route: 048
     Dates: start: 20160915
  2. BRILINTA [Suspect]
     Active Substance: TICAGRELOR
     Indication: MYOCARDIAL INFARCTION
     Route: 048
     Dates: start: 20160915
  3. BRILINTA [Suspect]
     Active Substance: TICAGRELOR
     Indication: STENT PLACEMENT
     Route: 048
     Dates: start: 20160915
  4. ASPIRIN. [Concomitant]
     Active Substance: ASPIRIN
     Route: 048
     Dates: start: 20160915

REACTIONS (1)
  - Tooth disorder [Unknown]
